FAERS Safety Report 13547108 (Version 1)
Quarter: 2017Q2

REPORT INFORMATION
  Report Type: Report from Study
  Country: GB (occurrence: GB)
  Receive Date: 20170515
  Receipt Date: 20170515
  Transmission Date: 20170830
  Serious: Yes (Hospitalization)
  Sender: FDA-Public Use
  Company Number: GB-VERTEX PHARMACEUTICALS-2017-002540

PATIENT
  Age: 37 Year
  Sex: Male
  Weight: 64 kg

DRUGS (22)
  1. DNASE [Concomitant]
     Active Substance: DEOXYRIBONUCLIEC ACID
     Dosage: 2.5 MG, QD
     Route: 055
     Dates: start: 201701
  2. SPIRONOLACTONE. [Concomitant]
     Active Substance: SPIRONOLACTONE
     Dosage: 25 MG MANE
     Dates: start: 201303
  3. FRUSEMIDE [Concomitant]
     Active Substance: FUROSEMIDE
     Dosage: 40 MG MANE
     Dates: start: 201303
  4. RAMIPRIL. [Concomitant]
     Active Substance: RAMIPRIL
     Dosage: 10 MG, QD
     Dates: start: 201303
  5. PREDNISOLONE. [Concomitant]
     Active Substance: PREDNISOLONE
     Indication: INFECTIVE PULMONARY EXACERBATION OF CYSTIC FIBROSIS
     Dosage: 20 MG, QD
     Dates: start: 20170420
  6. HYPERTONIC SALINE SOLUTION [Concomitant]
     Active Substance: SODIUM CHLORIDE
     Dosage: 5 ML, BID BEFORE PHYSIOTHERAPY
     Dates: start: 201705
  7. AZTREONAM. [Concomitant]
     Active Substance: AZTREONAM
     Dosage: 75 MG, TID, ALTERNATE MONTHS
     Route: 055
     Dates: start: 201702
  8. BISOPROLOL [Concomitant]
     Active Substance: BISOPROLOL
     Dosage: 10 MG, QD
     Dates: start: 201303
  9. VITAMIN E [Concomitant]
     Active Substance: .ALPHA.-TOCOPHEROL
     Dosage: 200 UT, QD
     Dates: start: 1995
  10. ADCAL D3 [Concomitant]
     Active Substance: CALCIUM CARBONATE\CHOLECALCIFEROL
     Dosage: 1 DF, BID
     Dates: start: 201104
  11. SALBUTAMOL [Concomitant]
     Active Substance: ALBUTEROL
     Dosage: 2.5 MG, PRN
     Route: 055
     Dates: start: 1990
  12. ORKAMBI [Suspect]
     Active Substance: IVACAFTOR\LUMACAFTOR
     Dosage: 2 DF, BID
     Route: 048
     Dates: start: 20170324, end: 20170418
  13. TOBI [Concomitant]
     Active Substance: TOBRAMYCIN
     Dosage: 300 MG, BID ALTERNATE MONTHS
     Route: 055
     Dates: start: 201104
  14. LANTUS [Concomitant]
     Active Substance: INSULIN GLARGINE
     Dosage: AS ADVISED 32 MANE
     Dates: start: 201201
  15. ANORO ELLIPTA [Concomitant]
     Active Substance: UMECLIDINIUM BROMIDE\VILANTEROL TRIFENATATE
     Dosage: 55/22MCG ONE PUFF B.D.
     Dates: start: 201702
  16. ORKAMBI [Suspect]
     Active Substance: IVACAFTOR\LUMACAFTOR
     Indication: CYSTIC FIBROSIS
     Dosage: 1 DF QD SLOWLY INCREASING DOSAGE
     Route: 048
     Dates: start: 20170317
  17. CREON [Concomitant]
     Active Substance: PANCRELIPASE AMYLASE\PANCRELIPASE LIPASE\PANCRELIPASE PROTEASE
     Dosage: WITH FOOD APPROX 40 PER DAY, 10-12 WITH MEALS, 6-8 WITH SNACKS
     Dates: start: 1980
  18. URSODEOXYCHOLIC ACID [Concomitant]
     Active Substance: URSODIOL
     Dosage: 750MG MANE/500MG NOCTE
     Dates: start: 1990
  19. NOVORAPID [Concomitant]
     Active Substance: INSULIN ASPART
     Dosage: 4 MANE, 8 WITH LUNCH, 12-14 WITH MEALS
     Dates: start: 201201
  20. PREDNISOLONE. [Concomitant]
     Active Substance: PREDNISOLONE
     Indication: DYSPNOEA
     Dosage: 10 MG, BID
     Dates: start: 201702
  21. AZITHROMYCIN ANHYDROUS. [Concomitant]
     Active Substance: AZITHROMYCIN ANHYDROUS
     Dosage: 500MG ON MON, WED + FRI
     Dates: start: 2005
  22. DIFFLAM [Concomitant]
     Active Substance: BENZYDAMINE HYDROCHLORIDE
     Dosage: 10 MG, QID
     Dates: start: 2013

REACTIONS (2)
  - Dyspnoea [Recovered/Resolved]
  - Infective pulmonary exacerbation of cystic fibrosis [Recovered/Resolved]

NARRATIVE: CASE EVENT DATE: 20170322
